FAERS Safety Report 8555528-X (Version None)
Quarter: 2012Q3

REPORT INFORMATION
  Report Type: 
  Country: None (occurrence: None)
  Receive Date: 20120731
  Receipt Date: 20120307
  Transmission Date: 20120928
  Serious: No
  Sender: FDA-Public Use
  Company Number: US-ASTRAZENECA-2010SE43452

PATIENT
  Age: 32 Year
  Sex: Female

DRUGS (7)
  1. ADDERALL 5 [Concomitant]
  2. IRON [Concomitant]
  3. PROPRANOLOL [Concomitant]
  4. SEROQUEL [Suspect]
     Route: 048
  5. IBUPROFEN [Concomitant]
  6. SKELAXIN [Concomitant]
  7. CELEXA [Concomitant]

REACTIONS (3)
  - ACTIVITIES OF DAILY LIVING IMPAIRED [None]
  - INSOMNIA [None]
  - DRUG DOSE OMISSION [None]
